FAERS Safety Report 5525492-6 (Version None)
Quarter: 2007Q4

REPORT INFORMATION
  Report Type: 
  Country: None (occurrence: None)
  Receive Date: 20071120
  Receipt Date: 20071113
  Transmission Date: 20080405
  Serious: Yes (Other)
  Sender: FDA-Public Use
  Company Number: CHPA2007US12262

PATIENT
  Sex: Female

DRUGS (1)
  1. BENEFIBER W/ WHEAT DEXTRIN (NCH) (WHEAT DEXTRIN) CAPLET [Suspect]
     Indication: NUTRITIONAL SUPPORT
     Dosage: 2 DF, QD FOR TWO MONTHS, ORAL
     Route: 048
     Dates: start: 20070801

REACTIONS (3)
  - ERYTHEMA [None]
  - OEDEMA PERIPHERAL [None]
  - SWELLING FACE [None]
